FAERS Safety Report 11240649 (Version 1)
Quarter: 2015Q3

REPORT INFORMATION
  Report Type: Spontaneous
  Country: US (occurrence: US)
  Receive Date: 20150706
  Receipt Date: 20150706
  Transmission Date: 20151125
  Serious: Yes (Other)
  Sender: FDA-Public Use
  Company Number: US-BAYER-2015-367657

PATIENT
  Age: 65 Year
  Sex: Female

DRUGS (1)
  1. BETASERON [Suspect]
     Active Substance: INTERFERON BETA-1B
     Indication: MULTIPLE SCLEROSIS
     Dosage: DAILY DOSE .3 MG
     Dates: start: 200912

REACTIONS (12)
  - Limb discomfort [None]
  - Clumsiness [None]
  - Monoplegia [None]
  - Multiple sclerosis relapse [None]
  - Pain [None]
  - Product use issue [None]
  - Paraesthesia [None]
  - Gait disturbance [None]
  - Hypoaesthesia [None]
  - Pain in extremity [None]
  - Muscle tightness [None]
  - Nerve injury [None]
